FAERS Safety Report 12339928 (Version 1)
Quarter: 2016Q2

REPORT INFORMATION
  Report Type: Spontaneous
  Country: US (occurrence: US)
  Receive Date: 20160506
  Receipt Date: 20160506
  Transmission Date: 20160815
  Serious: No
  Sender: FDA-Public Use
  Company Number: US-009507513-1604USA018047

PATIENT
  Sex: Male

DRUGS (1)
  1. JANUMET [Suspect]
     Active Substance: METFORMIN HYDROCHLORIDE\SITAGLIPTIN PHOSPHATE
     Dosage: 1 TABLET(STRENGTH 50/1000 MG), BID
     Route: 048

REACTIONS (2)
  - Fatigue [Recovered/Resolved]
  - Asthenia [Recovered/Resolved]
